FAERS Safety Report 7535303-5 (Version None)
Quarter: 2011Q2

REPORT INFORMATION
  Report Type: 
  Country: None (occurrence: None)
  Receive Date: 20110609
  Receipt Date: 20080116
  Transmission Date: 20111010
  Serious: Yes (Death, Hospitalization)
  Sender: FDA-Public Use
  Company Number: PHFR2008GB00454

PATIENT
  Sex: Male

DRUGS (4)
  1. CLOZARIL [Suspect]
     Dosage: 2200 MG OVERDOSE
     Route: 048
     Dates: start: 20080103
  2. PIRENZEPINE [Suspect]
     Dosage: 50 MG, TID
     Route: 048
     Dates: start: 20020101
  3. PIRENZEPINE [Suspect]
     Dosage: 350 MG OVERDOSE
     Route: 065
     Dates: start: 20080103
  4. CLOZARIL [Suspect]
     Indication: SCHIZOPHRENIA
     Dosage: 900 MG PER DAY
     Route: 048
     Dates: start: 20010717

REACTIONS (2)
  - PSYCHOTIC DISORDER [None]
  - INTENTIONAL OVERDOSE [None]
